FAERS Safety Report 8973959 (Version 1)
Quarter: 2012Q4

REPORT INFORMATION
  Report Type: 
  Country: US (occurrence: US)
  Receive Date: 20121218
  Receipt Date: 20121218
  Transmission Date: 20130627
  Serious: Yes (Hospitalization)
  Sender: FDA-Public Use
  Company Number: US-BAYER-2012-132421

PATIENT
  Age: 31 Year
  Sex: Female
  Weight: 82.99 kg

DRUGS (6)
  1. YAZ [Suspect]
  2. OCELLA [Suspect]
  3. CLARITHROMYCIN [Concomitant]
  4. IBUPROFEN [IBUPROFEN] [Concomitant]
  5. OXYCODONE/APAP [Concomitant]
  6. PROMETHAZINE DM [Concomitant]

REACTIONS (2)
  - Deep vein thrombosis [Not Recovered/Not Resolved]
  - Pulmonary embolism [Recovered/Resolved]
